FAERS Safety Report 10155736 (Version 1)
Quarter: 2014Q2

REPORT INFORMATION
  Report Type: Spontaneous
  Country: US (occurrence: US)
  Receive Date: 20140506
  Receipt Date: 20140506
  Transmission Date: 20141212
  Serious: Yes (Other)
  Sender: FDA-Public Use
  Company Number: US-BAYER-2014-064357

PATIENT
  Age: 84 Year
  Sex: Female
  Weight: 63.49 kg

DRUGS (7)
  1. ALEVE TABLET [Suspect]
     Indication: SPINAL COLUMN STENOSIS
     Dosage: UNK
     Route: 048
  2. ALEVE TABLET [Suspect]
     Indication: NEUROPATHY PERIPHERAL
  3. ALEVE CAPLET [Suspect]
     Indication: SPINAL COLUMN STENOSIS
     Route: 048
  4. ALEVE CAPLET [Suspect]
     Indication: NEUROPATHY PERIPHERAL
  5. ALEVE GELCAPS [Suspect]
     Indication: SPINAL COLUMN STENOSIS
     Route: 048
  6. ALEVE GELCAPS [Suspect]
     Indication: NEUROPATHY PERIPHERAL
  7. ALEVE GELCAPS [Suspect]
     Indication: ARTHRITIS

REACTIONS (9)
  - Choking [Recovered/Resolved]
  - Foreign body [Recovered/Resolved]
  - Foreign body [Recovered/Resolved]
  - Choking [Recovered/Resolved]
  - Wrong technique in drug usage process [None]
  - Burn oesophageal [Recovered/Resolved]
  - Incorrect drug administration duration [None]
  - Burn oesophageal [Recovered/Resolved]
  - Wrong technique in drug usage process [None]
